FAERS Safety Report 8082463-6 (Version None)
Quarter: 2012Q1

REPORT INFORMATION
  Report Type: 
  Country: None (occurrence: None)
  Receive Date: 20120127
  Receipt Date: 20110221
  Transmission Date: 20120608
  Serious: No
  Sender: FDA-Public Use
  Company Number: US-ABBOTT-11P-163-0706480-00

PATIENT
  Age: 47 Year
  Sex: Female

DRUGS (13)
  1. TRICOR [Concomitant]
     Indication: BLOOD CHOLESTEROL INCREASED
  2. VITAMIN D [Concomitant]
     Indication: MINERAL SUPPLEMENTATION
  3. HUMIRA [Suspect]
     Indication: CROHN'S DISEASE
     Dates: start: 20110110
  4. DIOVAN [Concomitant]
     Indication: HYPERTENSION
  5. HUMULIN R [Concomitant]
     Indication: DIABETES MELLITUS
     Dosage: INSULIN SLIDING SCALE
  6. LANTUS [Concomitant]
     Indication: DIABETES MELLITUS
     Dosage: AT BEDTIME
  7. ASPIRIN [Concomitant]
     Indication: ANTICOAGULANT THERAPY
  8. CRESTOR [Concomitant]
     Indication: BLOOD CHOLESTEROL INCREASED
  9. PREVACID [Concomitant]
     Indication: GASTROOESOPHAGEAL REFLUX DISEASE
  10. LEXAPRO [Concomitant]
     Indication: DEPRESSION
  11. GLYBURIDE AND METFORMIN HYDROCHLORIDE [Concomitant]
     Indication: DIABETES MELLITUS
     Dosage: 5-500 (2 TABS)
  12. ASCORBIC ACID [Concomitant]
     Indication: VITAMIN SUPPLEMENTATION
  13. CALCIUM [Concomitant]
     Indication: MINERAL SUPPLEMENTATION

REACTIONS (3)
  - MALAISE [None]
  - ARTHRALGIA [None]
  - NASOPHARYNGITIS [None]
